FAERS Safety Report 4898967-0 (Version None)
Quarter: 2006Q1

REPORT INFORMATION
  Report Type: 
  Country: None (occurrence: None)
  Receive Date: 20060202
  Receipt Date: 20060127
  Transmission Date: 20060701
  Serious: Yes (Death)
  Sender: FDA-Public Use
  Company Number: US-JNJFOC-20051201464

PATIENT
  Sex: Female
  Weight: 72.4 kg

DRUGS (9)
  1. DURAGESIC-100 [Suspect]
     Indication: HEADACHE
     Route: 062
     Dates: start: 20031212
  2. FENTANYL CITRATE [Concomitant]
     Indication: PAIN
     Route: 042
     Dates: start: 20031212
  3. IV FLUIDS [Concomitant]
     Route: 042
     Dates: start: 20031212, end: 20031212
  4. IV FLUIDS [Concomitant]
     Route: 042
     Dates: start: 20031212, end: 20031212
  5. IV FLUIDS [Concomitant]
     Route: 042
     Dates: start: 20031212, end: 20031212
  6. IV FLUIDS [Concomitant]
     Dosage: 2 LITERS OF IV FLUIDS
     Route: 042
     Dates: start: 20031212, end: 20031212
  7. ZOFRAN [Concomitant]
  8. NS [Concomitant]
     Dosage: 1000 CC, 2 TIMES
     Route: 042
     Dates: start: 20031212, end: 20031212
  9. BENADRYL [Concomitant]
     Dosage: 25 CC, 1 TIME
     Dates: start: 20031212, end: 20031212

REACTIONS (4)
  - DRUG TOXICITY [None]
  - NAUSEA [None]
  - PULMONARY OEDEMA [None]
  - VOMITING [None]
